FAERS Safety Report 6974203-6 (Version None)
Quarter: 2010Q3

REPORT INFORMATION
  Report Type: 
  Country: None (occurrence: None)
  Receive Date: 20100909
  Receipt Date: 20080215
  Transmission Date: 20110219
  Serious: No
  Sender: FDA-Public Use
  Company Number: US-WYE-H02705008

PATIENT
  Sex: Female
  Weight: 54.48 kg

DRUGS (6)
  1. PROTONIX [Suspect]
     Indication: GASTROOESOPHAGEAL REFLUX DISEASE
     Route: 048
     Dates: start: 20071114
  2. OMEPRAZOLE [Concomitant]
  3. FOLIC ACID [Concomitant]
  4. LUNESTA [Concomitant]
  5. PREMARIN [Interacting]
     Dosage: UNKNOWN
  6. LEVOTHYROXINE SODIUM [Concomitant]

REACTIONS (3)
  - CONDITION AGGRAVATED [None]
  - DERMATITIS HERPETIFORMIS [None]
  - DRUG INTERACTION [None]
